FAERS Safety Report 4335326-3 (Version None)
Quarter: 2004Q2

REPORT INFORMATION
  Report Type: 
  Country: None (occurrence: None)
  Receive Date: 20040407
  Receipt Date: 20040407
  Transmission Date: 20050107
  Serious: Yes (Hospitalization)
  Sender: FDA-Public Use
  Company Number: None

PATIENT
  Age: 68 Year
  Sex: Male

DRUGS (2)
  1. FLECAINIDE ACETATE [Suspect]
  2. DILTIAZEM HCL [Suspect]

REACTIONS (2)
  - BLOOD PRESSURE FLUCTUATION [None]
  - HEART RATE ABNORMAL [None]
